FAERS Safety Report 22641725 (Version 1)
Quarter: 2023Q2

REPORT INFORMATION
  Report Type: Spontaneous
  Country: US (occurrence: None)
  Receive Date: 20230623
  Receipt Date: 20230623
  Transmission Date: 20230722
  Serious: Yes (Hospitalization)
  Sender: FDA-Public Use
  Company Number: None

PATIENT
  Age: 63 Year
  Sex: Female

DRUGS (1)
  1. MYCOPHENOLATE MOFETIL [Suspect]
     Active Substance: MYCOPHENOLATE MOFETIL
     Dosage: OTHER QUANTITY : 1000MG + 500MG;?FREQUENCY : TWICE A DAY;?
     Route: 048

REACTIONS (1)
  - Appendix cancer [None]

NARRATIVE: CASE EVENT DATE: 20230421
